FAERS Safety Report 24630064 (Version 1)
Quarter: 2024Q4

REPORT INFORMATION
  Report Type: Report from Study
  Country: GB (occurrence: GB)
  Receive Date: 20241118
  Receipt Date: 20241118
  Transmission Date: 20250115
  Serious: Yes (Hospitalization)
  Sender: SAMSUNG BIOEPIS
  Company Number: GB-SAMSUNG BIOEPIS-SB-2024-33479

PATIENT
  Age: 51 Year
  Sex: Female

DRUGS (1)
  1. IMRALDI [Suspect]
     Active Substance: ADALIMUMAB
     Indication: Crohn^s disease
     Dosage: 40 MG/0.8 ML;
     Route: 058
     Dates: start: 20241018

REACTIONS (10)
  - Renal pain [Unknown]
  - Back pain [Unknown]
  - Chest pain [Unknown]
  - Eye swelling [Unknown]
  - Decreased appetite [Unknown]
  - Diarrhoea [Unknown]
  - Influenza like illness [Unknown]
  - Dry skin [Unknown]
  - Fatigue [Unknown]
  - Hypophagia [Unknown]
